FAERS Safety Report 7549796-0 (Version None)
Quarter: 2011Q2

REPORT INFORMATION
  Report Type: 
  Country: None (occurrence: None)
  Receive Date: 20110615
  Receipt Date: 20070417
  Transmission Date: 20111010
  Serious: Yes (Hospitalization)
  Sender: FDA-Public Use
  Company Number: PHFR2007GB01003

PATIENT
  Sex: Male

DRUGS (11)
  1. BENDROFLUAZIDE [Concomitant]
     Route: 065
  2. FLUCONAZOLE [Concomitant]
     Route: 065
  3. RISPERIDONE [Concomitant]
     Route: 065
  4. ESOMEPRAZOLE MAGNESIUM [Concomitant]
     Route: 065
  5. CLOZAPINE [Suspect]
     Indication: SCHIZOPHRENIA
     Route: 048
     Dates: start: 19970911, end: 20070309
  6. PIPERACILLIN SODIUM [Concomitant]
     Route: 065
  7. ACETAMINOPHEN AND CODEINE PHOSPHATE [Concomitant]
     Route: 065
  8. CYCLIZINE [Concomitant]
     Route: 065
  9. OCTREOTIDE ACETATE [Concomitant]
     Route: 065
  10. ENOXAPARIN [Concomitant]
     Route: 065
  11. LANSOPRAZOLE [Concomitant]
     Route: 065

REACTIONS (5)
  - JAUNDICE [None]
  - CHOLESTASIS [None]
  - PANCREATIC CARCINOMA [None]
  - HEPATIC FAILURE [None]
  - LIVER FUNCTION TEST ABNORMAL [None]
